FAERS Safety Report 5781769-0 (Version None)
Quarter: 2008Q2

REPORT INFORMATION
  Report Type: 
  Country: None (occurrence: None)
  Receive Date: 20080623
  Receipt Date: 20080611
  Transmission Date: 20081010
  Serious: Yes (Hospitalization, Other)
  Sender: FDA-Public Use
  Company Number: BE-WYE-H04455108

PATIENT
  Sex: Male
  Weight: 73.8 kg

DRUGS (10)
  1. PROGRAF [Suspect]
     Indication: PROPHYLAXIS AGAINST TRANSPLANT REJECTION
     Dosage: 2 MG AM, 1 MG PM DAILY
     Route: 048
     Dates: start: 20080329
  2. MEDROL [Concomitant]
     Indication: PROPHYLAXIS AGAINST TRANSPLANT REJECTION
     Route: 048
     Dates: start: 20080604
  3. OMEPRAZOLE [Concomitant]
     Indication: PROPHYLAXIS AGAINST GASTROINTESTINAL ULCER
     Route: 048
     Dates: start: 20080515
  4. URSO FALK [Concomitant]
     Indication: PROPHYLAXIS
     Dates: start: 20080519
  5. BEFACT [Concomitant]
     Route: 048
     Dates: start: 20080402
  6. CALCIUM CITRATE/CALCIUM PHOSPHATE/CITRIC ACID/COLECALCIFEROL [Concomitant]
     Dosage: 1 UNIT EVERY 1 DAY
     Route: 048
     Dates: start: 20080402
  7. PROPRANOLOL [Concomitant]
     Indication: HYPERTENSION
     Dosage: 20 MG
     Dates: start: 20080515
  8. EUSAPRIM [Concomitant]
     Indication: INFECTION PROPHYLAXIS
     Route: 048
     Dates: start: 20080402
  9. CELLCEPT [Concomitant]
     Indication: PROPHYLAXIS AGAINST TRANSPLANT REJECTION
     Route: 048
     Dates: start: 20080402
  10. NILSTAT [Concomitant]
     Indication: INFECTION PROPHYLAXIS
     Route: 048
     Dates: start: 20080330

REACTIONS (1)
  - HEPATIC NEOPLASM MALIGNANT RECURRENT [None]
